FAERS Safety Report 25435216 (Version 1)
Quarter: 2025Q2

REPORT INFORMATION
  Report Type: Spontaneous
  Country: BR (occurrence: BR)
  Receive Date: 20250613
  Receipt Date: 20250613
  Transmission Date: 20250716
  Serious: Yes (Hospitalization, Other)
  Sender: Alora Pharma
  Company Number: BR-VERTICAL PHARMACEUTICALS-2025ALO02282

PATIENT
  Age: 84 Year
  Sex: Female

DRUGS (3)
  1. ESTRADIOL [Suspect]
     Active Substance: ESTRADIOL
     Indication: Hormone replacement therapy
     Dosage: EVERY DAY OF THE MONTH (1 GM,1 M)
  2. ESTRADIOL [Suspect]
     Active Substance: ESTRADIOL
     Dosage: ONCE A WEEK OR EVERY 5 OR 6 DAYS (1 GM)
     Dates: start: 2022
  3. ESTRADIOL [Suspect]
     Active Substance: ESTRADIOL
     Dates: start: 20241129

REACTIONS (13)
  - Wrist fracture [Unknown]
  - Cystitis [Unknown]
  - Cataract [Unknown]
  - Blindness unilateral [Unknown]
  - Deafness unilateral [Unknown]
  - Breast mass [Unknown]
  - Tinnitus [Unknown]
  - Ear discomfort [Unknown]
  - Sciatica [Unknown]
  - Inappropriate schedule of product administration [Unknown]
  - Product complaint [Unknown]
  - Product packaging quantity issue [Unknown]
  - Product label issue [Unknown]

NARRATIVE: CASE EVENT DATE: 20230901
